FAERS Safety Report 19853188 (Version 1)
Quarter: 2021Q3

REPORT INFORMATION
  Report Type: Spontaneous
  Country: US (occurrence: US)
  Receive Date: 20210919
  Receipt Date: 20210919
  Transmission Date: 20211014
  Serious: No
  Sender: FDA-Public Use
  Company Number: US-SA-2021SA305849

PATIENT
  Sex: Female
  Weight: 112 kg

DRUGS (13)
  1. VITAMIN B12 [VITAMIN B12 NOS] [Concomitant]
     Active Substance: CYANOCOBALAMIN
  2. SINGULAIR [Concomitant]
     Active Substance: MONTELUKAST SODIUM
  3. DUPIXENT [Suspect]
     Active Substance: DUPILUMAB
     Indication: ASTHMA
     Route: 058
     Dates: start: 201903
  4. PREVACID [Concomitant]
     Active Substance: LANSOPRAZOLE
  5. ZYRTEC [Concomitant]
     Active Substance: CETIRIZINE HYDROCHLORIDE
  6. LIPITOR [Concomitant]
     Active Substance: ATORVASTATIN CALCIUM
  7. VITAMIN D [VITAMIN D NOS] [Concomitant]
     Active Substance: VITAMIN D NOS
  8. CLOBETASOL [Concomitant]
     Active Substance: CLOBETASOL
  9. GASTRIC [Concomitant]
  10. EUCRISA [Concomitant]
     Active Substance: CRISABOROLE
  11. HUMALOG [Concomitant]
     Active Substance: INSULIN LISPRO
  12. METFORMIN [Concomitant]
     Active Substance: METFORMIN HYDROCHLORIDE
  13. TRULICITY [Concomitant]
     Active Substance: DULAGLUTIDE

REACTIONS (3)
  - Dry skin [Unknown]
  - Rash [Unknown]
  - Product dose omission issue [Unknown]
